FAERS Safety Report 8272623-3 (Version None)
Quarter: 2012Q2

REPORT INFORMATION
  Report Type: 
  Country: None (occurrence: None)
  Receive Date: 20120410
  Receipt Date: 20120127
  Transmission Date: 20120825
  Serious: Yes (Other)
  Sender: FDA-Public Use
  Company Number: PHHY2012KR029715

PATIENT
  Sex: Male
  Weight: 20 kg

DRUGS (8)
  1. TACROLIMUS [Concomitant]
  2. BLOOD TRANSFUSION, AUXILIARY PRODUCTS [Concomitant]
  3. EXJADE [Suspect]
     Indication: ACUTE MYELOID LEUKAEMIA
  4. EXJADE [Suspect]
     Indication: IRON OVERLOAD
     Dosage: UNK UKN, UNK
     Route: 048
     Dates: start: 20100929
  5. CETIRIZINE HCL [Concomitant]
  6. IMMUNOSUPPRESSANTS [Concomitant]
  7. PREDNISOLONE [Concomitant]
  8. STEROIDS NOS [Concomitant]

REACTIONS (2)
  - OBSTRUCTIVE AIRWAYS DISORDER [None]
  - DIABETES MELLITUS [None]
